FAERS Safety Report 19298646 (Version 1)
Quarter: 2021Q2

REPORT INFORMATION
  Report Type: Spontaneous
  Country: US (occurrence: US)
  Receive Date: 20210524
  Receipt Date: 20210524
  Transmission Date: 20210717
  Serious: Yes (Other)
  Sender: FDA-Public Use
  Company Number: US-GLAXOSMITHKLINE-US2021GSK110895

PATIENT
  Sex: Male

DRUGS (23)
  1. ZANTAC [Suspect]
     Active Substance: RANITIDINE HYDROCHLORIDE
     Dosage: 75 MG BOTH
     Route: 065
     Dates: start: 198805, end: 201810
  2. RANITIDINE CAPSULE [Suspect]
     Active Substance: RANITIDINE
     Dosage: 75 MG  BOTH
     Route: 065
     Dates: start: 200501, end: 201701
  3. ZANTAC [Suspect]
     Active Substance: RANITIDINE HYDROCHLORIDE
     Dosage: UNK
  4. RANITIDINE. [Suspect]
     Active Substance: RANITIDINE
     Indication: GASTROOESOPHAGEAL REFLUX DISEASE
     Dosage: 75 MG  BOTH
     Route: 065
     Dates: start: 200501, end: 201701
  5. RANITIDINE. [Suspect]
     Active Substance: RANITIDINE
     Dosage: 300 UNK, QD
     Route: 065
     Dates: start: 200501, end: 201701
  6. ZANTAC [Suspect]
     Active Substance: RANITIDINE HYDROCHLORIDE
     Indication: GASTROOESOPHAGEAL REFLUX DISEASE
     Dosage: 25 MG BOTH
     Route: 065
     Dates: start: 198805, end: 201810
  7. ZANTAC [Suspect]
     Active Substance: RANITIDINE HYDROCHLORIDE
     Indication: GASTROOESOPHAGEAL REFLUX DISEASE
     Dosage: 25 MG BOTH
     Route: 065
     Dates: start: 198805, end: 201810
  8. ZANTAC [Suspect]
     Active Substance: RANITIDINE HYDROCHLORIDE
     Indication: GASTROOESOPHAGEAL REFLUX DISEASE
     Dosage: 25 MG/ML, QD
     Route: 065
     Dates: start: 200501, end: 201801
  9. ZANTAC [Suspect]
     Active Substance: RANITIDINE HYDROCHLORIDE
     Dosage: UNK
  10. RANITIDINE. [Suspect]
     Active Substance: RANITIDINE
     Indication: GASTROOESOPHAGEAL REFLUX DISEASE
     Dosage: 150  MG BOTH
     Route: 065
     Dates: start: 200501, end: 201701
  11. ZANTAC [Suspect]
     Active Substance: RANITIDINE HYDROCHLORIDE
     Dosage: 75 MG BOTH
     Route: 065
     Dates: start: 198805, end: 201810
  12. RANITIDINE. [Suspect]
     Active Substance: RANITIDINE
     Dosage: 300 UNK, QD
     Route: 065
     Dates: start: 200501, end: 201701
  13. RANITIDINE HYDROCHLORIDE. [Suspect]
     Active Substance: RANITIDINE HYDROCHLORIDE
     Indication: GASTROOESOPHAGEAL REFLUX DISEASE
     Dosage: 25 MG/ML, QD
     Route: 065
     Dates: start: 200501, end: 201801
  14. RANITIDINE HYDROCHLORIDE. [Suspect]
     Active Substance: RANITIDINE HYDROCHLORIDE
     Dosage: UNK
  15. RANITIDINE HYDROCHLORIDE. [Suspect]
     Active Substance: RANITIDINE HYDROCHLORIDE
     Dosage: UNK
  16. ZANTAC [Suspect]
     Active Substance: RANITIDINE HYDROCHLORIDE
     Dosage: 150 MG, QD
     Route: 065
     Dates: start: 198805, end: 201810
  17. RANITIDINE CAPSULE [Suspect]
     Active Substance: RANITIDINE
     Dosage: GM003 BOTH
     Route: 065
     Dates: start: 200501, end: 201701
  18. RANITIDINE. [Suspect]
     Active Substance: RANITIDINE
     Dosage: 150  MG BOTH
     Route: 065
     Dates: start: 200501, end: 201701
  19. ZANTAC [Suspect]
     Active Substance: RANITIDINE HYDROCHLORIDE
     Dosage: 150 MG, QD
     Route: 065
     Dates: start: 198805, end: 201810
  20. RANITIDINE. [Suspect]
     Active Substance: RANITIDINE
     Dosage: 150  MG BOTH
     Route: 065
     Dates: start: 200501, end: 201701
  21. RANITIDINE. [Suspect]
     Active Substance: RANITIDINE
     Dosage: 300 UNK, QD
     Route: 065
     Dates: start: 200501, end: 201701
  22. RANITIDINE CAPSULE [Suspect]
     Active Substance: RANITIDINE
     Indication: GASTROOESOPHAGEAL REFLUX DISEASE
     Dosage: 150  MG BOTH
     Route: 065
     Dates: start: 200501, end: 201701
  23. RANITIDINE. [Suspect]
     Active Substance: RANITIDINE
     Indication: GASTROOESOPHAGEAL REFLUX DISEASE
     Dosage: 75 MG  BOTH
     Route: 065
     Dates: start: 200501, end: 201701

REACTIONS (1)
  - Prostate cancer [Unknown]
